FAERS Safety Report 14383739 (Version 1)
Quarter: 2018Q1

REPORT INFORMATION
  Report Type: Spontaneous
  Country: GR (occurrence: GR)
  Receive Date: 20180115
  Receipt Date: 20180115
  Transmission Date: 20180509
  Serious: Yes (Death, Hospitalization, Other)
  Sender: FDA-Public Use
  Company Number: GR-009507513-1801GRC004119

PATIENT
  Age: 59 Year
  Sex: Male

DRUGS (1)
  1. KEYTRUDA [Suspect]
     Active Substance: PEMBROLIZUMAB
     Indication: NON-SMALL CELL LUNG CANCER
     Dosage: FIRST LINE TREATMENT

REACTIONS (6)
  - Metastases to central nervous system [Unknown]
  - Pulmonary embolism [Unknown]
  - Haemoptysis [Unknown]
  - Lower gastrointestinal haemorrhage [Unknown]
  - Hypophysitis [Unknown]
  - Hypovolaemic shock [Fatal]
